FAERS Safety Report 4485464-X (Version None)
Quarter: 2004Q4

REPORT INFORMATION
  Report Type: 
  Country: None (occurrence: None)
  Receive Date: 20041026
  Receipt Date: 20041015
  Transmission Date: 20050328
  Serious: Yes (Hospitalization)
  Sender: FDA-Public Use
  Company Number: 200417987US

PATIENT
  Age: 75 Year
  Sex: Female

DRUGS (1)
  1. NASACORT AQ [Suspect]
     Indication: EAR CONGESTION
     Dosage: DOSE: UNK
     Dates: start: 20040809

REACTIONS (5)
  - APHASIA [None]
  - DIZZINESS [None]
  - DYSSTASIA [None]
  - EAR CONGESTION [None]
  - MOTOR DYSFUNCTION [None]
